FAERS Safety Report 6923957-3 (Version None)
Quarter: 2010Q3

REPORT INFORMATION
  Report Type: 
  Country: None (occurrence: None)
  Receive Date: 20100813
  Receipt Date: 20100805
  Transmission Date: 20110219
  Serious: Yes (Hospitalization)
  Sender: FDA-Public Use
  Company Number: US-ELI_LILLY_AND_COMPANY-US201008001898

PATIENT
  Sex: Female
  Weight: 65.306 kg

DRUGS (12)
  1. BYETTA [Suspect]
     Indication: TYPE 2 DIABETES MELLITUS
     Dosage: 10 UG, 2/D
     Route: 058
  2. LEXAPRO [Concomitant]
     Dosage: 20 MG, DAILY (1/D)
  3. BUSPIRONE HCL [Concomitant]
     Dosage: 30 MG, EACH EVENING
  4. LORAZEPAM [Concomitant]
     Dosage: 0.5 MG, 4/D
  5. DIOVAN HCT [Concomitant]
     Dosage: 320 MG, DAILY (1/D)
     Route: 048
  6. LIPITOR [Concomitant]
     Dosage: 20 MG, DAILY (1/D)
     Route: 048
  7. NEXIUM [Concomitant]
     Dosage: 40 MG, DAILY (1/D)
  8. ASPIRIN [Concomitant]
     Dosage: 81 MG, DAILY (1/D)
  9. AMBIEN CR [Concomitant]
     Dosage: 12.5 MG, AS NEEDED
  10. GABAPENTIN [Concomitant]
     Dosage: 300 MG, EACH EVENING
  11. GEODON [Concomitant]
     Dosage: 40 MG, EACH EVENING
     Route: 048
  12. METFORMIN HCL [Concomitant]
     Indication: TYPE 2 DIABETES MELLITUS

REACTIONS (4)
  - BLEEDING TIME PROLONGED [None]
  - NAUSEA [None]
  - RENAL FAILURE ACUTE [None]
  - TUBULOINTERSTITIAL NEPHRITIS [None]
